FAERS Safety Report 14030381 (Version 1)
Quarter: 2017Q4

REPORT INFORMATION
  Report Type: Spontaneous
  Country: US (occurrence: US)
  Receive Date: 20171002
  Receipt Date: 20171002
  Transmission Date: 20180321
  Serious: Yes (Other)
  Sender: FDA-Public Use
  Company Number: US-TEVA-811076USA

PATIENT
  Age: 43 Year
  Sex: Female

DRUGS (5)
  1. CEFOXITIN [Concomitant]
     Active Substance: CEFOXITIN SODIUM
     Indication: ANTIBIOTIC THERAPY
     Route: 048
  2. CLARITHROMYCIN. [Concomitant]
     Active Substance: CLARITHROMYCIN
     Indication: ANTIBIOTIC THERAPY
     Route: 048
  3. AMIKACIN [Suspect]
     Active Substance: AMIKACIN
     Route: 065
  4. LINEZOLID. [Suspect]
     Active Substance: LINEZOLID
     Route: 065
  5. IMIPENEM [Concomitant]
     Active Substance: IMIPENEM
     Route: 065

REACTIONS (2)
  - Neuropathy peripheral [Unknown]
  - Ototoxicity [Recovered/Resolved]
